FAERS Safety Report 8133926-6 (Version None)
Quarter: 2012Q1

REPORT INFORMATION
  Report Type: 
  Country: None (occurrence: None)
  Receive Date: 20120213
  Receipt Date: 20120130
  Transmission Date: 20120608
  Serious: Yes (Death, Other)
  Sender: FDA-Public Use
  Company Number: IT-CELGENEUS-083-21880-12013183

PATIENT

DRUGS (2)
  1. REVLIMID [Suspect]
     Indication: MULTIPLE MYELOMA
     Dosage: 10-25MG
     Route: 048
  2. DEXAMETHASONE [Suspect]
     Indication: MULTIPLE MYELOMA
     Route: 065

REACTIONS (12)
  - APHASIA [None]
  - RASH [None]
  - HEPATIC FUNCTION ABNORMAL [None]
  - DEEP VEIN THROMBOSIS [None]
  - CONJUNCTIVAL HAEMORRHAGE [None]
  - PERIPHERAL SENSORY NEUROPATHY [None]
  - URINARY TRACT INFECTION [None]
  - PNEUMONIA [None]
  - POST PROCEDURAL COMPLICATION [None]
  - DIARRHOEA [None]
  - MULTIPLE MYELOMA [None]
  - NEUTROPENIA [None]
